FAERS Safety Report 9028840 (Version 2)
Quarter: 2013Q1

REPORT INFORMATION
  Report Type: Report from Study
  Country: US (occurrence: US)
  Receive Date: 20130124
  Receipt Date: 20130204
  Transmission Date: 20140127
  Serious: Yes (Hospitalization)
  Sender: FDA-Public Use
  Company Number: US-UCBSA-075921

PATIENT
  Age: 69 Year
  Sex: Male
  Weight: 73 kg

DRUGS (12)
  1. CIMZIA [Suspect]
     Indication: CROHN^S DISEASE
     Dosage: DOSE: 400 MG
     Route: 058
     Dates: start: 20111206
  2. FOLIC ACID [Concomitant]
     Indication: CROHN^S DISEASE
     Dosage: UNKNOWN DOSE
  3. LISINOPRIL [Concomitant]
     Indication: HYPERTENSION
     Route: 048
     Dates: start: 200409
  4. TOPROL XL [Concomitant]
     Indication: HYPERTENSION
     Route: 048
     Dates: start: 199802
  5. PRILOSEC [Concomitant]
     Indication: GASTROOESOPHAGEAL REFLUX DISEASE
     Route: 048
     Dates: start: 20120131
  6. GLYBURIDE [Concomitant]
     Indication: DIABETES MELLITUS
     Route: 048
     Dates: start: 200010
  7. ASPIRIN [Concomitant]
     Indication: HYPERTENSION
     Route: 048
     Dates: start: 2004
  8. 6-MP [Concomitant]
     Indication: CROHN^S DISEASE
     Dosage: ACHIEVED SATISFACTORY RESPONSE INITIALLY, BUT LOST IT OVER TIME
     Dates: start: 200404, end: 20080930
  9. 6-MP [Concomitant]
     Indication: CROHN^S DISEASE
     Dates: start: 20090917
  10. LOPERAMIDE [Concomitant]
     Indication: CROHN^S DISEASE
     Dosage: UNKNOWN DOSE
  11. VITAMIN B12 [Concomitant]
     Indication: CROHN^S DISEASE
     Dosage: UNKNOWN DOSE
  12. QUESTRAN [Concomitant]
     Indication: CROHN^S DISEASE
     Dosage: UNKNOWN DOSE

REACTIONS (2)
  - Conjunctivitis infective [Recovered/Resolved]
  - Cellulitis [Recovered/Resolved]
